FAERS Safety Report 8998278 (Version 2)
Quarter: 2013Q1

REPORT INFORMATION
  Report Type: Spontaneous
  Country: IT (occurrence: IT)
  Receive Date: 20130104
  Receipt Date: 20130109
  Transmission Date: 20140127
  Serious: Yes (Death, Other)
  Sender: FDA-Public Use
  Company Number: PHHY2013IT001035

PATIENT
  Sex: Female

DRUGS (4)
  1. AREDIA [Suspect]
     Indication: BREAST CANCER STAGE IV
     Dosage: 90 MG, UNK
     Route: 042
     Dates: start: 20010101, end: 20050101
  2. AREDIA [Suspect]
     Dosage: UNK UKN, UNK
     Route: 042
  3. AREDIA [Suspect]
     Dosage: UNK UKN, UNK
     Route: 042
     Dates: start: 200603
  4. ZOMETA [Suspect]

REACTIONS (3)
  - Osteonecrosis of jaw [Fatal]
  - Breast cancer [Unknown]
  - Malignant neoplasm progression [Unknown]
